FAERS Safety Report 7355893-5 (Version None)
Quarter: 2011Q1

REPORT INFORMATION
  Report Type: 
  Country: None (occurrence: None)
  Receive Date: 20110316
  Receipt Date: 20101101
  Transmission Date: 20110831
  Serious: No
  Sender: FDA-Public Use
  Company Number: US-BAYER-201023419BCC

PATIENT
  Sex: Male
  Weight: 86.364 kg

DRUGS (3)
  1. ALEVE [Suspect]
     Indication: BACK PAIN
     Dosage: HE TOOK 2 CAPLETS AT 7:30 AM, 2 MORE AT 11:30 AM AND 1 AT 3:30 PM. BOTTE COUNT 100S
     Route: 048
     Dates: start: 20101101
  2. ZYRTEC [Concomitant]
  3. NASONEX [Concomitant]
     Route: 045

REACTIONS (1)
  - NO ADVERSE EVENT [None]
